FAERS Safety Report 13613879 (Version 3)
Quarter: 2017Q3

REPORT INFORMATION
  Report Type: Spontaneous
  Country: IT (occurrence: IT)
  Receive Date: 20170606
  Receipt Date: 20170704
  Transmission Date: 20171127
  Serious: Yes (Other)
  Sender: FDA-Public Use
  Company Number: IT-BAXTER-2017BAX022361

PATIENT
  Age: 54 Year
  Sex: Female

DRUGS (8)
  1. FLUOROURACIL. [Suspect]
     Active Substance: FLUOROURACIL
     Indication: INTRADUCTAL PROLIFERATIVE BREAST LESION
     Dosage: FEC 50 (6 CYCLES)
     Route: 065
     Dates: start: 2005
  2. ENDOXAN BAXTER [Suspect]
     Active Substance: CYCLOPHOSPHAMIDE
     Indication: INTRADUCTAL PROLIFERATIVE BREAST LESION
     Dosage: FEC 50 (6 CYCLES)
     Route: 065
     Dates: start: 2005
  3. TAMOXIFEN CITRATE. [Suspect]
     Active Substance: TAMOXIFEN CITRATE
     Indication: INTRADUCTAL PROLIFERATIVE BREAST LESION
     Dosage: 4 YEARS 8 MONTHS
     Route: 048
     Dates: start: 2005
  4. EPIRUBICIN HYDROCHLORIDE. [Suspect]
     Active Substance: EPIRUBICIN HYDROCHLORIDE
     Indication: INTRADUCTAL PROLIFERATIVE BREAST LESION
     Dosage: FEC 50 (6 CYCLES)
     Route: 065
     Dates: start: 2005
  5. FULVESTRANT. [Suspect]
     Active Substance: FULVESTRANT
     Indication: ADVERSE EVENT
     Dosage: INTRAMUSCULAR FORMULATION: INJECTION
     Route: 030
  6. AROMASIN [Suspect]
     Active Substance: EXEMESTANE
     Route: 065
     Dates: start: 201312, end: 201510
  7. AROMASIN [Suspect]
     Active Substance: EXEMESTANE
     Indication: INTRADUCTAL PROLIFERATIVE BREAST LESION
     Route: 065
  8. ENANTONE LP [Suspect]
     Active Substance: LEUPROLIDE ACETATE
     Indication: PRODUCT USED FOR UNKNOWN INDICATION
     Route: 065
     Dates: start: 2005

REACTIONS (6)
  - Condition aggravated [Unknown]
  - Ovarian oedema [Recovered/Resolved]
  - Hormone level abnormal [Unknown]
  - Breast cancer metastatic [Unknown]
  - Feeling abnormal [Unknown]
  - Malignant neoplasm progression [Unknown]

NARRATIVE: CASE EVENT DATE: 2013
